FAERS Safety Report 4450077-2 (Version None)
Quarter: 2004Q3

REPORT INFORMATION
  Report Type: 
  Country: None (occurrence: None)
  Receive Date: 20040804
  Receipt Date: 20040213
  Transmission Date: 20050211
  Serious: Yes (Hospitalization)
  Sender: FDA-Public Use
  Company Number: 204356

PATIENT
  Age: 54 Year
  Sex: Female
  Weight: 56.2 kg

DRUGS (5)
  1. HERCEPTIN [Suspect]
     Indication: BREAST CANCER METASTATIC
     Dosage: 1/WEEK, INTRAVENOUS
     Route: 042
  2. CARBOPLATIN [Suspect]
     Indication: BREAST CANCER METASTATIC
  3. TAXOTERE [Suspect]
     Indication: BREAST CANCER METASTATIC
  4. BENADRYL [Concomitant]
  5. TYLENOL [Concomitant]

REACTIONS (2)
  - HYPERSENSITIVITY [None]
  - HYPERTENSION [None]
